FAERS Safety Report 25229472 (Version 1)
Quarter: 2025Q2

REPORT INFORMATION
  Report Type: Spontaneous
  Country: US (occurrence: None)
  Receive Date: 20250423
  Receipt Date: 20250423
  Transmission Date: 20250717
  Serious: Yes (Hospitalization)
  Sender: FDA-CTU
  Company Number: None

PATIENT
  Age: 14 Year
  Sex: Female
  Weight: 50.7 kg

DRUGS (14)
  1. CALASPARGASE PEGOL-MKNL [Suspect]
     Active Substance: CALASPARGASE PEGOL-MKNL
     Dates: end: 20240917
  2. CYCLOPHOSPHAMIDE [Suspect]
     Active Substance: CYCLOPHOSPHAMIDE
     Dates: end: 20240626
  3. CYTARABINE [Suspect]
     Active Substance: CYTARABINE
     Dates: end: 20240821
  4. DAUNORUBICIN [Suspect]
     Active Substance: DAUNORUBICIN
     Dates: end: 20240102
  5. DEXAMETHASONE [Suspect]
     Active Substance: DEXAMETHASONE
     Dates: end: 20240617
  6. ZINECARD [Suspect]
     Active Substance: DEXRAZOXANE HYDROCHLORIDE
     Dates: end: 20240611
  7. DOXORUBICIN HYDROCHLORIDE [Suspect]
     Active Substance: DOXORUBICIN HYDROCHLORIDE
     Dates: end: 20240611
  8. LEUCOVORIN CALCIUM [Suspect]
     Active Substance: LEUCOVORIN CALCIUM
     Dates: end: 20241122
  9. MERCAPTOPURINE [Suspect]
     Active Substance: MERCAPTOPURINE
     Dates: end: 20250419
  10. METHOTREXATE [Suspect]
     Active Substance: METHOTREXATE
     Dates: end: 20250416
  11. PREDNISONE [Suspect]
     Active Substance: PREDNISONE
     Dates: end: 20250413
  12. GLEEVEC [Suspect]
     Active Substance: IMATINIB MESYLATE
     Dates: end: 20250421
  13. THIOGUANINE ANHYDROUS [Suspect]
     Active Substance: THIOGUANINE ANHYDROUS
     Dates: end: 20240712
  14. VINCRISTINE SULFATE [Suspect]
     Active Substance: VINCRISTINE SULFATE
     Dates: end: 20250409

REACTIONS (1)
  - Staphylococcus test positive [None]

NARRATIVE: CASE EVENT DATE: 20250418
